FAERS Safety Report 18129107 (Version 1)
Quarter: 2020Q3

REPORT INFORMATION
  Report Type: Spontaneous
  Country: US (occurrence: US)
  Receive Date: 20200808
  Receipt Date: 20200808
  Transmission Date: 20201103
  Serious: Yes (Disabling)
  Sender: FDA-Public Use
  Company Number: None

PATIENT
  Age: 4 Year
  Sex: Female
  Weight: 22.5 kg

DRUGS (3)
  1. MIRALAX [Suspect]
     Active Substance: POLYETHYLENE GLYCOL 3350
     Indication: CONSTIPATION
     Dosage: ?          QUANTITY:1 CAP FULL;?
     Route: 048
     Dates: start: 20191101, end: 20200709
  2. VITAMINS [Concomitant]
     Active Substance: VITAMINS
  3. JUICE PLUS [Concomitant]
     Active Substance: DIETARY SUPPLEMENT

REACTIONS (10)
  - Condition aggravated [None]
  - Phobia [None]
  - Sleep terror [None]
  - Product use issue [None]
  - Behaviour disorder [None]
  - Anxiety [None]
  - Crying [None]
  - Off label use [None]
  - Urinary tract infection [None]
  - Attention deficit hyperactivity disorder [None]

NARRATIVE: CASE EVENT DATE: 20191201
